FAERS Safety Report 9289872 (Version 3)
Quarter: 2013Q2

REPORT INFORMATION
  Report Type: Report from Study
  Country: DE (occurrence: DE)
  Receive Date: 20130515
  Receipt Date: 20130607
  Transmission Date: 20140414
  Serious: Yes (Other)
  Sender: FDA-Public Use
  Company Number: PHHY2013DE047556

PATIENT
  Sex: Female

DRUGS (1)
  1. EXTAVIA [Suspect]
     Indication: MULTIPLE SCLEROSIS
     Dosage: 250 UG/ML, QOD
     Route: 058
     Dates: start: 20130405

REACTIONS (2)
  - Chest pain [Not Recovered/Not Resolved]
  - Injection site reaction [Not Recovered/Not Resolved]
